FAERS Safety Report 11122722 (Version 2)
Quarter: 2015Q2

REPORT INFORMATION
  Report Type: Report from Study
  Country: US (occurrence: US)
  Receive Date: 20150519
  Receipt Date: 20150625
  Transmission Date: 20150821
  Serious: Yes (Hospitalization)
  Sender: FDA-Public Use
  Company Number: US-SA-2015SA065176

PATIENT
  Age: 45 Year
  Sex: Female

DRUGS (1)
  1. AUBAGIO [Suspect]
     Active Substance: TERIFLUNOMIDE
     Indication: MULTIPLE SCLEROSIS
     Route: 048
     Dates: start: 20150407, end: 20150512

REACTIONS (9)
  - Visual field defect [Unknown]
  - Diarrhoea [Unknown]
  - Hypoaesthesia [Unknown]
  - Influenza like illness [Unknown]
  - Unevaluable event [Unknown]
  - Paraesthesia [Unknown]
  - Nausea [Unknown]
  - Poor quality sleep [Unknown]
  - Pain [Unknown]

NARRATIVE: CASE EVENT DATE: 2015
